FAERS Safety Report 9145635 (Version 1)
Quarter: 2013Q1

REPORT INFORMATION
  Report Type: Spontaneous
  Country: US (occurrence: US)
  Receive Date: 20130307
  Receipt Date: 20130307
  Transmission Date: 20140127
  Serious: Yes (Death)
  Sender: FDA-Public Use
  Company Number: US-PFIZER INC-2013077022

PATIENT
  Age: 49 Year
  Sex: Male
  Weight: 78.46 kg

DRUGS (4)
  1. CAMPTOSAR [Suspect]
     Indication: COLON CANCER METASTATIC
     Dosage: 600 MG, WEEKLY
     Dates: start: 201108
  2. CAMPTOSAR [Suspect]
     Dosage: 800 MG, WEEKLY
  3. CAMPTOSAR [Suspect]
     Dosage: 400 MG, WEEKLY
  4. CAMPTOSAR [Suspect]
     Dosage: 1020 MG, WEEKLY
     Dates: end: 20111103

REACTIONS (3)
  - Disease progression [Fatal]
  - Colon cancer metastatic [Fatal]
  - International normalised ratio increased [Unknown]
